FAERS Safety Report 12528703 (Version 2)
Quarter: 2016Q3

REPORT INFORMATION
  Report Type: Report from Study
  Country: CH (occurrence: CH)
  Receive Date: 20160705
  Receipt Date: 20160902
  Transmission Date: 20161109
  Serious: Yes (Other)
  Sender: FDA-Public Use
  Company Number: CH-BAYER-2016-124629

PATIENT
  Age: 65 Year
  Sex: Female

DRUGS (9)
  1. GADOTERIDOL [Suspect]
     Active Substance: GADOTERIDOL
     Indication: NUCLEAR MAGNETIC RESONANCE IMAGING ABDOMINAL
     Dosage: 16 MMOL, ONCE
     Dates: start: 200107, end: 200107
  2. GADOTERIDOL [Suspect]
     Active Substance: GADOTERIDOL
     Indication: NUCLEAR MAGNETIC RESONANCE IMAGING ABDOMINAL
     Dosage: 5 MMOL, UNK
     Dates: start: 200409, end: 200409
  3. GADOTERIDOL [Suspect]
     Active Substance: GADOTERIDOL
     Indication: NUCLEAR MAGNETIC RESONANCE IMAGING ABDOMINAL
     Dosage: 5 MMOL, ONCE
     Dates: start: 200502, end: 200502
  4. GADOTERIDOL [Suspect]
     Active Substance: GADOTERIDOL
     Indication: NUCLEAR MAGNETIC RESONANCE IMAGING ABDOMINAL
     Dosage: 16 MMOL, ONCE
     Dates: start: 200404, end: 200404
  5. GADODIAMIDE [Suspect]
     Active Substance: GADODIAMIDE
     Indication: NUCLEAR MAGNETIC RESONANCE IMAGING ABDOMINAL
     Dosage: 15 MMOL, ONCE
     Dates: start: 199908, end: 199908
  6. GADOTERIDOL [Suspect]
     Active Substance: GADOTERIDOL
     Indication: NUCLEAR MAGNETIC RESONANCE IMAGING ABDOMINAL
     Dosage: 5 MMOL, ONCE
     Dates: start: 200603, end: 200603
  7. GADOBUTROL [Suspect]
     Active Substance: GADOBUTROL
     Indication: NUCLEAR MAGNETIC RESONANCE IMAGING BRAIN
     Dosage: 5 MMOL, ONCE
     Dates: start: 200501, end: 200501
  8. GADOBUTROL [Suspect]
     Active Substance: GADOBUTROL
     Indication: MUSCULAR WEAKNESS
  9. GADOBUTROL [Suspect]
     Active Substance: GADOBUTROL
     Indication: LOSS OF CONSCIOUSNESS

REACTIONS (3)
  - Nuclear magnetic resonance imaging brain abnormal [Not Recovered/Not Resolved]
  - Disturbance in attention [None]
  - Confusional state [None]
